FAERS Safety Report 15625067 (Version 1)
Quarter: 2018Q4

REPORT INFORMATION
  Report Type: Spontaneous
  Country: BE (occurrence: BE)
  Receive Date: 20181116
  Receipt Date: 20181116
  Transmission Date: 20190205
  Serious: Yes (Other)
  Sender: FDA-Public Use
  Company Number: PHHY2018BE151101

PATIENT
  Age: 59 Year
  Sex: Male

DRUGS (3)
  1. DABRAFENIB [Suspect]
     Active Substance: DABRAFENIB
     Dosage: 75 MG, UNK
     Route: 065
     Dates: start: 20170228
  2. DABRAFENIB [Suspect]
     Active Substance: DABRAFENIB
     Indication: METASTATIC MALIGNANT MELANOMA
     Dosage: 150 MG, BID
     Route: 065
     Dates: start: 20170207
  3. TRAMETINIB [Concomitant]
     Active Substance: TRAMETINIB
     Indication: METASTATIC MALIGNANT MELANOMA
     Dosage: 2 MG, QD
     Route: 065
     Dates: start: 20170207

REACTIONS (6)
  - Diarrhoea [Unknown]
  - Abdominal pain [Unknown]
  - Malaise [Unknown]
  - Dermatitis exfoliative generalised [Unknown]
  - Anaphylactic shock [Unknown]
  - Pyrexia [Unknown]
